FAERS Safety Report 5240253-3 (Version None)
Quarter: 2007Q1

REPORT INFORMATION
  Report Type: 
  Country: None (occurrence: None)
  Receive Date: 20061208
  Receipt Date: 20060511
  Transmission Date: 20070707
  Serious: Yes (Other)
  Sender: FDA-Public Use
  Company Number: 2006UW09357

PATIENT
  Age: 78 Year
  Sex: Female
  Weight: 104.32 kg

DRUGS (10)
  1. CRESTOR [Suspect]
     Indication: BLOOD CHOLESTEROL INCREASED
     Dosage: 5 MG PO
     Route: 048
     Dates: start: 20060501
  2. GLIPIZIDE [Concomitant]
  3. WARFARIN SODIUM [Concomitant]
  4. AVANDIA [Concomitant]
  5. RANITIDINE [Concomitant]
  6. TRAZODONE HCL [Concomitant]
  7. LANTUS [Concomitant]
  8. DIAZEPAM [Concomitant]
  9. NEURONTIN [Concomitant]
  10. PROPOXY [Concomitant]

REACTIONS (2)
  - GAIT DISTURBANCE [None]
  - PAIN IN EXTREMITY [None]
